FAERS Safety Report 14026782 (Version 5)
Quarter: 2018Q3

REPORT INFORMATION
  Report Type: Report from Study
  Country: CA (occurrence: CA)
  Receive Date: 20170929
  Receipt Date: 20180814
  Transmission Date: 20181010
  Serious: Yes (Other)
  Sender: FDA-Public Use
  Company Number: CA-NOVEN PHARMACEUTICALS, INC.-CA2017000914

PATIENT

DRUGS (21)
  1. SYNTHROID [Concomitant]
     Active Substance: LEVOTHYROXINE SODIUM
  2. RIVA ROSUVASTATIN [Concomitant]
  3. PARACETAMOL WITH CODEINE PHOSPHATE [Concomitant]
     Active Substance: ACETAMINOPHEN\CODEINE PHOSPHATE
  4. DULOXETINE. [Suspect]
     Active Substance: DULOXETINE
     Indication: PAIN IN EXTREMITY
     Dosage: UNK, UNKNOWN
     Route: 065
     Dates: start: 20170520
  5. AMOXICIL?CLAVUL GI [Concomitant]
     Active Substance: AMOXICILLIN\CLAVULANATE POTASSIUM
     Dosage: 500 MG, BID
     Route: 048
  6. SANDOSTATIN [Suspect]
     Active Substance: OCTREOTIDE ACETATE
     Indication: PRODUCT USED FOR UNKNOWN INDICATION
     Dosage: 100 ?G, TID
     Route: 058
     Dates: start: 201710
  7. ATENOLOL. [Suspect]
     Active Substance: ATENOLOL
     Indication: PRODUCT USED FOR UNKNOWN INDICATION
     Dosage: UNK, UNKNOWN
     Route: 065
  8. AVAMYS [Concomitant]
     Active Substance: FLUTICASONE FUROATE
  9. NAPROXEN. [Concomitant]
     Active Substance: NAPROXEN
  10. RIVA LANSOPRAZOLE [Concomitant]
  11. APO NAPROXEN [Concomitant]
     Active Substance: NAPROXEN
  12. LYRICA [Concomitant]
     Active Substance: PREGABALIN
     Dosage: 75 MG + 50 MG PER DAY
  13. APO AMITRIPTYLINE [Concomitant]
     Active Substance: AMITRIPTYLINE
  14. LAX?A?DAY [Concomitant]
  15. ESTRADIOL/NORETHISTERONE ACETATE [Suspect]
     Active Substance: ESTRADIOL\NORETHINDRONE ACETATE
     Indication: PRODUCT USED FOR UNKNOWN INDICATION
     Dosage: 1 DF (140/50 0.14MG?0.05MG), 2/WK
     Route: 065
  16. VITAMIN E [Concomitant]
     Active Substance: .ALPHA.-TOCOPHEROL
     Dosage: 400 MG IU, ONCE DAILY FOR A WEEK
     Dates: start: 201610
  17. RIVA AMLODIPINE [Concomitant]
  18. EURO ASA EC [Concomitant]
  19. CANDESARTAN CILEXETIL. [Suspect]
     Active Substance: CANDESARTAN CILEXETIL
     Indication: PRODUCT USED FOR UNKNOWN INDICATION
     Dosage: 2 MG/ 25 MG, QD
     Route: 048
  20. RIVA?CYCLOPRINE [Concomitant]
     Indication: PRODUCT USED FOR UNKNOWN INDICATION
  21. AMOXICIL?CLAVUL GI [Concomitant]
     Active Substance: AMOXICILLIN\CLAVULANATE POTASSIUM
     Dosage: 500 MG, TID
     Route: 048

REACTIONS (18)
  - Hot flush [Unknown]
  - Nausea [Recovered/Resolved]
  - Sinusitis [Recovered/Resolved]
  - Dyspnoea [Unknown]
  - Back pain [Recovering/Resolving]
  - Constipation [Unknown]
  - Rhinorrhoea [Unknown]
  - Musculoskeletal pain [Unknown]
  - Pruritus [Not Recovered/Not Resolved]
  - Acne [Not Recovered/Not Resolved]
  - Fatigue [Unknown]
  - Dizziness [Unknown]
  - Renal impairment [Unknown]
  - Contusion [Unknown]
  - Productive cough [Unknown]
  - Bursitis [Unknown]
  - Somnolence [Unknown]
  - Abdominal distension [Unknown]

NARRATIVE: CASE EVENT DATE: 20160926
